FAERS Safety Report 9163697 (Version 1)
Quarter: 2013Q1

REPORT INFORMATION
  Report Type: Spontaneous
  Country: FR (occurrence: FR)
  Receive Date: 20130314
  Receipt Date: 20130314
  Transmission Date: 20140127
  Serious: Yes (Hospitalization, Other)
  Sender: FDA-Public Use
  Company Number: FR-NOVOPROD-369840

PATIENT
  Age: 5 Year
  Sex: Male
  Weight: 19 kg

DRUGS (1)
  1. NORDITROPIN SIMPLEXX [Suspect]
     Indication: GROWTH HORMONE DEFICIENCY
     Dosage: 1 MG, QD
     Route: 058
     Dates: start: 20120120, end: 20130120

REACTIONS (2)
  - Cystic lymphangioma [Not Recovered/Not Resolved]
  - Condition aggravated [Not Recovered/Not Resolved]
